FAERS Safety Report 13313956 (Version 3)
Quarter: 2019Q2

REPORT INFORMATION
  Report Type: Spontaneous
  Country: US (occurrence: US)
  Receive Date: 20170309
  Receipt Date: 20190403
  Transmission Date: 20190711
  Serious: Yes (Other)
  Sender: FDA-Public Use
  Company Number: US-BAYER-2017-040619

PATIENT
  Age: 41 Year
  Sex: Female
  Weight: 83.73 kg

DRUGS (4)
  1. MIRENA [Suspect]
     Active Substance: LEVONORGESTREL
     Indication: CONTRACEPTION
  2. MIRENA [Suspect]
     Active Substance: LEVONORGESTREL
     Indication: CONTRACEPTION
     Dosage: 20 MCG/24HR, CONT
     Route: 015
     Dates: start: 20170117
  3. POVIDONE-IODINE. [Concomitant]
     Active Substance: POVIDONE-IODINE
     Indication: INFECTION PROPHYLAXIS
     Dosage: UNK
     Dates: start: 20170117
  4. IRON [Concomitant]
     Active Substance: IRON
     Indication: ANAEMIA
     Route: 048

REACTIONS (14)
  - Insomnia [None]
  - Perineal pain [None]
  - Uterine haemorrhage [None]
  - Device expulsion [None]
  - Abdominal pain [None]
  - Back pain [None]
  - Pain in extremity [None]
  - Gingival pain [None]
  - Pelvic pain [None]
  - Genital haemorrhage [None]
  - Gingivitis [None]
  - Vaginal haemorrhage [None]
  - Headache [None]
  - Eye disorder [None]

NARRATIVE: CASE EVENT DATE: 2017
